FAERS Safety Report 12187360 (Version 4)
Quarter: 2024Q3

REPORT INFORMATION
  Report Type: Spontaneous
  Country: US (occurrence: SA)
  Receive Date: 20160317
  Receipt Date: 20240820
  Transmission Date: 20241016
  Serious: Yes (Hospitalization, Other)
  Sender: SANOFI AVENTIS
  Company Number: US-SA-2016SA050106

PATIENT
  Age: 11 Year
  Sex: Female

DRUGS (3)
  1. DOCETAXEL [Suspect]
     Active Substance: DOCETAXEL\DOCETAXEL ANHYDROUS
     Indication: Neuroblastoma
     Dosage: UNK UNK, QCY
  2. GEMCITABINE [Suspect]
     Active Substance: GEMCITABINE
     Indication: Neuroblastoma
     Dosage: UNK, QCY
  3. SORAFENIB [Suspect]
     Active Substance: SORAFENIB
     Indication: Neuroblastoma
     Dosage: UNK, QCY

REACTIONS (2)
  - Urinary tract obstruction [Unknown]
  - Product use in unapproved indication [Unknown]
